FAERS Safety Report 25318525 (Version 1)
Quarter: 2025Q2

REPORT INFORMATION
  Report Type: Other
  Country: FR (occurrence: FR)
  Receive Date: 20250515
  Receipt Date: 20250515
  Transmission Date: 20250716
  Serious: Yes (Other)
  Sender: ANI
  Company Number: FR-ANIPHARMA-022767

PATIENT

DRUGS (4)
  1. TEMOZOLOMIDE [Suspect]
     Active Substance: TEMOZOLOMIDE
     Indication: Central nervous system neoplasm
  2. CARBOPLATIN [Concomitant]
     Active Substance: CARBOPLATIN
     Indication: Central nervous system neoplasm
  3. ETOPOSIDE [Concomitant]
     Active Substance: ETOPOSIDE
     Indication: Central nervous system neoplasm
  4. THIOTEPA [Concomitant]
     Active Substance: THIOTEPA
     Indication: Central nervous system neoplasm

REACTIONS (1)
  - Haematotoxicity [Unknown]
